FAERS Safety Report 5662320-2 (Version None)
Quarter: 2008Q1

REPORT INFORMATION
  Report Type: 
  Country: None (occurrence: None)
  Receive Date: 20080312
  Receipt Date: 20080229
  Transmission Date: 20080703
  Serious: Yes (Other)
  Sender: FDA-Public Use
  Company Number: JP-PFIZER INC-2008019899

PATIENT
  Age: 23 Year
  Sex: Female

DRUGS (1)
  1. ZITHROMAX [Suspect]
     Indication: CHLAMYDIAL INFECTION
     Route: 048
     Dates: start: 20080225, end: 20080225

REACTIONS (3)
  - CAESAREAN SECTION [None]
  - DRUG ADMINISTRATION ERROR [None]
  - VOMITING [None]
